FAERS Safety Report 15240707 (Version 1)
Quarter: 2018Q3

REPORT INFORMATION
  Report Type: Spontaneous
  Country: US (occurrence: US)
  Receive Date: 20180710
  Receipt Date: 20180710
  Transmission Date: 20181010
  Serious: Yes (Hospitalization)
  Sender: FDA-Public Use
  Company Number: None

PATIENT
  Age: 64 Year
  Sex: Male

DRUGS (1)
  1. BENDAMUSTINE [Suspect]
     Active Substance: BENDAMUSTINE
     Indication: MANTLE CELL LYMPHOMA
     Route: 042
     Dates: start: 20180329

REACTIONS (5)
  - Rash [None]
  - Adverse drug reaction [None]
  - Tachycardia [None]
  - Leukocytosis [None]
  - Pyrexia [None]

NARRATIVE: CASE EVENT DATE: 20180406
